FAERS Safety Report 7381939-4 (Version None)
Quarter: 2011Q1

REPORT INFORMATION
  Report Type: 
  Country: None (occurrence: None)
  Receive Date: 20110329
  Receipt Date: 20110328
  Transmission Date: 20110831
  Serious: Yes (Other)
  Sender: FDA-Public Use
  Company Number: US-CEPHALON-2011000998

PATIENT
  Sex: Female
  Weight: 49 kg

DRUGS (2)
  1. AMOXICILLIN [Concomitant]
  2. NUVIGIL [Suspect]
     Indication: NARCOLEPSY
     Route: 048

REACTIONS (3)
  - DENTAL IMPLANTATION [None]
  - INFLUENZA LIKE ILLNESS [None]
  - RASH [None]
